FAERS Safety Report 5227156-5 (Version None)
Quarter: 2007Q1

REPORT INFORMATION
  Report Type: 
  Country: None (occurrence: None)
  Receive Date: 20070130
  Receipt Date: 20070118
  Transmission Date: 20070707
  Serious: Yes (Life-Threatening, Hospitalization)
  Sender: FDA-Public Use
  Company Number: 2007RR-05413

PATIENT
  Age: 57 Year
  Sex: Male

DRUGS (1)
  1. IBUPROFEN [Suspect]
     Indication: PAIN
     Dosage: 400 MG, TID, ORAL
     Route: 048
     Dates: start: 20061220, end: 20061222

REACTIONS (1)
  - GASTROINTESTINAL HAEMORRHAGE [None]
